FAERS Safety Report 7269164-9 (Version None)
Quarter: 2011Q1

REPORT INFORMATION
  Report Type: 
  Country: None (occurrence: None)
  Receive Date: 20110202
  Receipt Date: 20110128
  Transmission Date: 20110831
  Serious: Yes (Hospitalization, Other)
  Sender: FDA-Public Use
  Company Number: US-PFIZER INC-2009289099

PATIENT
  Sex: Female

DRUGS (3)
  1. TEMAZEPAM [Concomitant]
     Indication: INSOMNIA
     Dosage: UNK
     Dates: start: 20080626, end: 20081006
  2. CHANTIX [Suspect]
     Indication: SMOKING CESSATION THERAPY
     Dosage: UNK
     Route: 048
     Dates: start: 20080903, end: 20081019
  3. OLOPATADINE HYDROCHLORIDE [Concomitant]
     Dosage: UNK
     Dates: start: 20080626, end: 20081031

REACTIONS (5)
  - ABNORMAL BEHAVIOUR [None]
  - PANIC ATTACK [None]
  - SUICIDE ATTEMPT [None]
  - AGGRESSION [None]
  - MOOD SWINGS [None]
